FAERS Safety Report 18300473 (Version 1)
Quarter: 2020Q3

REPORT INFORMATION
  Report Type: Spontaneous
  Country: US (occurrence: US)
  Receive Date: 20200923
  Receipt Date: 20200923
  Transmission Date: 20201103
  Serious: Yes (Other)
  Sender: FDA-Public Use
  Company Number: None

PATIENT
  Age: 77 Year
  Sex: Male
  Weight: 104 kg

DRUGS (6)
  1. REMDESIVIR. [Suspect]
     Active Substance: REMDESIVIR
     Indication: COVID-19
     Route: 041
     Dates: start: 20200911, end: 20200917
  2. DEXAMETHASONE. [Concomitant]
     Active Substance: DEXAMETHASONE
     Dates: start: 20200912
  3. CEFEPIME [Concomitant]
     Active Substance: CEFEPIME HYDROCHLORIDE
     Dates: start: 20200917
  4. PROPOFOL. [Concomitant]
     Active Substance: PROPOFOL
     Dates: start: 20200915
  5. FENTANYL. [Concomitant]
     Active Substance: FENTANYL
     Dates: start: 20200915
  6. NOREPINEPHRINE. [Concomitant]
     Active Substance: NOREPINEPHRINE
     Dates: start: 20200915

REACTIONS (3)
  - Clostridium difficile infection [None]
  - Renal impairment [None]
  - Therapy cessation [None]

NARRATIVE: CASE EVENT DATE: 20200917
